FAERS Safety Report 20907618 (Version 2)
Quarter: 2022Q2

REPORT INFORMATION
  Report Type: Spontaneous
  Country: US (occurrence: US)
  Receive Date: 20220602
  Receipt Date: 20220616
  Transmission Date: 20220721
  Serious: Yes (Hospitalization)
  Sender: FDA-Public Use
  Company Number: US-TEVA-2022-US-2041251

PATIENT
  Age: 10 Year
  Sex: Female
  Weight: 49.4 kg

DRUGS (4)
  1. ETHOSUXIMIDE [Suspect]
     Active Substance: ETHOSUXIMIDE
     Indication: Petit mal epilepsy
     Dosage: 250 MILLIGRAM DAILY;
     Route: 065
  2. AMOXICILLIN [Suspect]
     Active Substance: AMOXICILLIN
     Indication: Swelling
     Route: 048
  3. PREDNISONE [Suspect]
     Active Substance: PREDNISONE
     Indication: Nephrotic syndrome
     Dosage: 60 MILLIGRAM DAILY; WITH GRADUAL TAPERING OVER SIX WEEKS
     Route: 065
  4. PREDNISONE [Suspect]
     Active Substance: PREDNISONE
     Indication: Tubulointerstitial nephritis

REACTIONS (5)
  - Lupus-like syndrome [Recovering/Resolving]
  - Acute kidney injury [Recovering/Resolving]
  - Nephrotic syndrome [Recovering/Resolving]
  - Hypertension [Recovered/Resolved]
  - Tubulointerstitial nephritis [Recovering/Resolving]
